FAERS Safety Report 19131762 (Version 1)
Quarter: 2021Q2

REPORT INFORMATION
  Report Type: Report from Study
  Country: None (occurrence: FR)
  Receive Date: 20210414
  Receipt Date: 20210414
  Transmission Date: 20210717
  Serious: Yes (Other)
  Sender: FDA-Public Use
  Company Number: FR-ABBVIE-21K-056-3858320-00

PATIENT
  Age: 67 Year
  Sex: Male

DRUGS (2)
  1. DUODOPA [Suspect]
     Active Substance: CARBIDOPA\LEVODOPA
     Indication: PARKINSON^S DISEASE
     Dosage: BASAL RATE: 4.6 ML/H
     Route: 050
     Dates: start: 201805, end: 2021
  2. DUODOPA [Suspect]
     Active Substance: CARBIDOPA\LEVODOPA
     Dosage: BASAL RATE: 5ML/H
     Route: 050
     Dates: start: 2021

REACTIONS (2)
  - Muscle spasms [Recovering/Resolving]
  - Asthenia [Recovering/Resolving]
